FAERS Safety Report 10155987 (Version 1)
Quarter: 2014Q2

REPORT INFORMATION
  Report Type: Spontaneous
  Country: PL (occurrence: PL)
  Receive Date: 20140506
  Receipt Date: 20140506
  Transmission Date: 20141212
  Serious: Yes (Other)
  Sender: FDA-Public Use
  Company Number: PL-BAXTER-2014BAX021918

PATIENT
  Age: 61 Year
  Sex: Female

DRUGS (5)
  1. ENDOXAN [Suspect]
     Indication: SPLENIC MARGINAL ZONE LYMPHOMA
     Dosage: 4 CYLES
     Route: 065
  2. RITUXIMAB [Suspect]
     Indication: SPLENIC MARGINAL ZONE LYMPHOMA
     Dosage: 4 CYLES
     Route: 065
  3. DOXORUBICIN [Suspect]
     Indication: SPLENIC MARGINAL ZONE LYMPHOMA
     Dosage: 4 CYLES
     Route: 065
  4. VINCRISTINE [Suspect]
     Indication: SPLENIC MARGINAL ZONE LYMPHOMA
     Dosage: 4 CYLES
     Route: 065
  5. PREDNISONE [Suspect]
     Indication: SPLENIC MARGINAL ZONE LYMPHOMA
     Dosage: 4 CYLES
     Route: 065

REACTIONS (1)
  - Disease progression [Unknown]
